FAERS Safety Report 21315646 (Version 1)
Quarter: 2022Q3

REPORT INFORMATION
  Report Type: Report from Study
  Country: HU (occurrence: HU)
  Receive Date: 20220909
  Receipt Date: 20220909
  Transmission Date: 20221026
  Serious: Yes (Hospitalization)
  Sender: FDA-Public Use
  Company Number: HU-JNJFOC-20220903561

PATIENT
  Age: 80 Year
  Sex: Male
  Weight: 85.2 kg

DRUGS (19)
  1. VENETOCLAX [Suspect]
     Active Substance: VENETOCLAX
     Indication: Plasma cell myeloma
     Route: 048
     Dates: start: 20170213, end: 20170319
  2. VENETOCLAX [Suspect]
     Active Substance: VENETOCLAX
     Route: 048
     Dates: start: 20170330
  3. DEXAMETHASONE [Suspect]
     Active Substance: DEXAMETHASONE
     Indication: Plasma cell myeloma
     Dosage: ON DAYS 1,2,4,5,8,9,11 AND 12 OF 21 DAY CYCLE
     Route: 065
     Dates: start: 20170213, end: 20170314
  4. VELCADE [Suspect]
     Active Substance: BORTEZOMIB
     Indication: Plasma cell myeloma
     Dosage: ON DAYS 1,4,7, AND 11 OF 21 CYCLE
     Route: 065
     Dates: start: 20170213, end: 20170317
  5. VELCADE [Suspect]
     Active Substance: BORTEZOMIB
     Dosage: ON DAYS 1,4,7, AND 11 OF 21 CYCLE
     Route: 065
     Dates: start: 20170330
  6. CALCIVID [Concomitant]
     Indication: Hypocalcaemia
     Dosage: 500/400 MG/IU
     Dates: start: 20170330
  7. CALCIVID [Concomitant]
     Indication: Hypophosphataemia
  8. NOACID [Concomitant]
     Indication: Prophylaxis against gastrointestinal ulcer
     Dates: start: 20170224
  9. INSULIN HUMAN [Concomitant]
     Active Substance: INSULIN HUMAN
     Indication: Steroid diabetes
     Dosage: 22:00 (14 UNIT)
     Dates: start: 20170306, end: 20170323
  10. INSULIN HUMAN [Concomitant]
     Active Substance: INSULIN HUMAN
     Dosage: 22:00
     Dates: start: 20170323
  11. INSULIN HUMAN [Concomitant]
     Active Substance: INSULIN HUMAN
     Dosage: 22:00 (6 UNIT)
     Dates: start: 20170225, end: 20170306
  12. ALPRAZOLAM [Concomitant]
     Active Substance: ALPRAZOLAM
     Indication: Insomnia
     Dates: start: 2011
  13. ROSUVASTATIN [Concomitant]
     Active Substance: ROSUVASTATIN
     Indication: Prophylaxis
     Dates: start: 2013
  14. INSULIN HUMAN [Concomitant]
     Active Substance: INSULIN HUMAN
     Indication: Steroid diabetes
     Dosage: 12-8-6 IU: 6:30-02:00-17:45
     Dates: start: 20170323
  15. INSULIN HUMAN [Concomitant]
     Active Substance: INSULIN HUMAN
     Dosage: 16-8-10 IU: 6:30-12:00-17:45
     Dates: start: 20170225, end: 20170306
  16. INSULIN HUMAN [Concomitant]
     Active Substance: INSULIN HUMAN
     Dosage: 25-25-20 IU: 6:30-12:00-17:45
     Dates: start: 20170306, end: 20170323
  17. ACYCLOVIR [Concomitant]
     Active Substance: ACYCLOVIR
     Indication: Herpes virus infection
     Dosage: 200 MG (400 MG,1 IN 2 DAYS)
     Dates: start: 20170224
  18. INSULIN HUMAN;INSULIN HUMAN INJECTION, ISOPHANE [Concomitant]
     Indication: Diabetes mellitus
     Dates: start: 2015, end: 20170225
  19. PENTOXIFYLLINE [Concomitant]
     Active Substance: PENTOXIFYLLINE
     Indication: Prophylaxis
     Dates: start: 2013

REACTIONS (4)
  - Insomnia [Unknown]
  - Diabetes mellitus [Unknown]
  - Mood altered [Unknown]
  - Muscular weakness [Recovered/Resolved]

NARRATIVE: CASE EVENT DATE: 20170316
